FAERS Safety Report 4381073-1 (Version None)
Quarter: 2004Q2

REPORT INFORMATION
  Report Type: 
  Country: None (occurrence: None)
  Receive Date: 20040621
  Receipt Date: 20040607
  Transmission Date: 20050107
  Serious: Yes (Hospitalization, Other)
  Sender: FDA-Public Use
  Company Number: PHBS2004IN07482

PATIENT
  Age: 35 Year
  Sex: Female
  Weight: 46 kg

DRUGS (3)
  1. ZIMIG (GSK INDIA) [Suspect]
     Indication: DERMATOPHYTOSIS
     Dosage: 250 MG, QD
     Route: 048
     Dates: start: 20040404, end: 20040407
  2. FORISTAL [Concomitant]
     Indication: PRURITUS
     Dosage: 1 DF, TID
     Route: 048
  3. BUTENAFINE [Concomitant]
     Dosage: UNK, QD
     Route: 061

REACTIONS (6)
  - ANOREXIA [None]
  - ASTHENIA [None]
  - DIZZINESS [None]
  - HEADACHE [None]
  - VERTIGO [None]
  - VOMITING [None]
